FAERS Safety Report 8440726 (Version 2)
Quarter: 2012Q4

REPORT INFORMATION
  Report Type: 
  Country: JP (occurrence: JP)
  Receive Date: 20120305
  Receipt Date: 20120919
  Transmission Date: 20130627
  Serious: Yes (Hospitalization)
  Sender: FDA-Public Use
  Company Number: JP-ROCHE-1043641

PATIENT
  Age: 77 Year
  Sex: Female
  Weight: 46 kg

DRUGS (4)
  1. AVASTIN [Suspect]
     Indication: COLON CANCER METASTATIC
     Route: 041
     Dates: start: 20111116, end: 20120222
  2. 5-FU [Suspect]
     Indication: COLON CANCER METASTATIC
     Route: 041
     Dates: start: 20111019, end: 20120223
  3. ELPLAT [Suspect]
     Indication: COLON CANCER METASTATIC
     Route: 041
     Dates: start: 20111019, end: 20120223
  4. LEVOFOLINATE [Suspect]
     Indication: COLON CANCER METASTATIC
     Route: 041
     Dates: start: 20111019, end: 20120223

REACTIONS (2)
  - Interstitial lung disease [Not Recovered/Not Resolved]
  - Neuropathy peripheral [Unknown]
